FAERS Safety Report 5201967-4 (Version None)
Quarter: 2007Q1

REPORT INFORMATION
  Report Type: 
  Country: None (occurrence: None)
  Receive Date: 20070104
  Receipt Date: 20070104
  Transmission Date: 20070707
  Serious: Yes (Life-Threatening, Hospitalization, Disabling, Other)
  Sender: FDA-Public Use
  Company Number: None

PATIENT
  Sex: Female
  Weight: 72.1219 kg

DRUGS (1)
  1. PHENYTOIN SODIUM [Suspect]
     Indication: CONVULSION PROPHYLAXIS
     Dosage: 1 CAPSULE  THREE A DAY  PO
     Route: 048
     Dates: start: 20061102, end: 20061202

REACTIONS (4)
  - BLISTER [None]
  - RASH [None]
  - SWELLING [None]
  - URTICARIA [None]
